FAERS Safety Report 6093176-4 (Version None)
Quarter: 2009Q1

REPORT INFORMATION
  Report Type: 
  Country: None (occurrence: None)
  Receive Date: 20090223
  Receipt Date: 20090209
  Transmission Date: 20090719
  Serious: Yes (Death, Hospitalization)
  Sender: FDA-Public Use
  Company Number: US025432

PATIENT
  Age: 67 Year
  Sex: Male
  Weight: 66 kg

DRUGS (8)
  1. ACTIQ [Suspect]
     Dosage: 400 UG PRN BUCCAL
     Route: 002
     Dates: start: 20080131
  2. SUTENT [Suspect]
     Indication: METASTATIC RENAL CELL CARCINOMA
     Dosage: 50 MG QD ORAL
     Route: 048
     Dates: start: 20080202, end: 20080515
  3. DURAGESIC-100 [Concomitant]
  4. NULYTELY [Concomitant]
  5. PANTOZOL [Concomitant]
  6. NOVALGIN [Concomitant]
  7. DEXAMETHASONE [Concomitant]
  8. AMITRIPTYLINE [Concomitant]

REACTIONS (6)
  - DEHYDRATION [None]
  - FATIGUE [None]
  - METASTASES TO CENTRAL NERVOUS SYSTEM [None]
  - NAUSEA [None]
  - PARALYSIS [None]
  - VOMITING [None]
